FAERS Safety Report 8381216-9 (Version None)
Quarter: 2012Q2

REPORT INFORMATION
  Report Type: 
  Country: None (occurrence: None)
  Receive Date: 20120523
  Receipt Date: 20120514
  Transmission Date: 20120825
  Serious: Yes (Hospitalization, Other)
  Sender: FDA-Public Use
  Company Number: US-MPIJNJ-2012-02186

PATIENT
  Sex: Female
  Weight: 85 kg

DRUGS (13)
  1. PERIDEX                            /00133002/ [Concomitant]
     Indication: PRODUCT USED FOR UNKNOWN INDICATION
  2. NEURONTIN [Concomitant]
     Indication: PRODUCT USED FOR UNKNOWN INDICATION
     Dosage: 300 MG, TID
     Route: 048
  3. OXYCODONE HYDROCHLORIDE [Concomitant]
     Indication: PAIN
     Dosage: 5 MG, PRN
     Route: 048
  4. PROTONIX [Concomitant]
     Indication: PRODUCT USED FOR UNKNOWN INDICATION
     Dosage: 40 MG, QD
     Route: 048
  5. VELCADE [Suspect]
     Indication: MULTIPLE MYELOMA
     Dosage: 2.7 MG, CYCLIC
     Route: 042
     Dates: start: 20111108, end: 20120224
  6. VELCADE [Suspect]
     Dosage: 2.7 MG, CYCLIC
     Dates: start: 20120501
  7. ANTIBIOTICS [Concomitant]
     Indication: PRODUCT USED FOR UNKNOWN INDICATION
  8. DECADRON [Suspect]
     Dosage: 40 MG, CYCLIC
     Route: 048
     Dates: start: 20120501
  9. CYTOXAN [Suspect]
  10. DECADRON [Suspect]
     Indication: MULTIPLE MYELOMA
     Dosage: 40 MG, CYCLIC
     Route: 048
  11. CYTOXAN [Suspect]
     Indication: MULTIPLE MYELOMA
  12. POTASSIUM CHLORIDE [Concomitant]
     Indication: PRODUCT USED FOR UNKNOWN INDICATION
     Dosage: 20 MEQ, BID
     Route: 048
  13. OXYCODONE AND ACETAMINOPHEN [Concomitant]
     Indication: PAIN
     Dosage: UNK
     Route: 048

REACTIONS (10)
  - FALL [None]
  - DECUBITUS ULCER [None]
  - PELVIC PAIN [None]
  - PANCYTOPENIA [None]
  - CLOSTRIDIUM DIFFICILE COLITIS [None]
  - URINARY TRACT INFECTION [None]
  - RENAL FAILURE ACUTE [None]
  - VOMITING [None]
  - METASTASES TO BONE [None]
  - DYSFUNCTIONAL UTERINE BLEEDING [None]
